FAERS Safety Report 5166672-1 (Version None)
Quarter: 2006Q4

REPORT INFORMATION
  Report Type: 
  Country: None (occurrence: None)
  Receive Date: 20061130
  Receipt Date: 20061130
  Transmission Date: 20070319
  Serious: No
  Sender: FDA-Public Use
  Company Number: None

PATIENT
  Sex: Female
  Weight: 68.0396 kg

DRUGS (1)
  1. ESTRADERM [Suspect]
     Indication: POSTMENOPAUSE
     Dosage: 0.05 MG WKLY  PATCH

REACTIONS (1)
  - RASH [None]
